FAERS Safety Report 9005006 (Version 1)
Quarter: 2013Q1

REPORT INFORMATION
  Report Type: Spontaneous
  Country: US (occurrence: US)
  Receive Date: 20130109
  Receipt Date: 20130109
  Transmission Date: 20140127
  Serious: Yes (Other)
  Sender: FDA-Public Use
  Company Number: US-SANOFI-AVENTIS-2013SA001050

PATIENT
  Age: 54 Year
  Sex: Female

DRUGS (4)
  1. LANTUS SOLOSTAR [Suspect]
     Indication: DIABETES MELLITUS
     Dosage: DOSE:40 UNIT(S)
     Route: 051
     Dates: start: 201209
  2. SOLOSTAR [Suspect]
     Indication: DIABETES MELLITUS
     Dosage: DOSE:40 UNIT(S)
     Dates: start: 201209
  3. METFORMIN [Concomitant]
  4. RAMIPRIL [Concomitant]
     Indication: BLOOD PRESSURE

REACTIONS (6)
  - Macular oedema [Unknown]
  - Retinopathy [Unknown]
  - Injection site pain [Unknown]
  - Hypersensitivity [Unknown]
  - Blood glucose increased [Unknown]
  - Fatigue [Unknown]
